FAERS Safety Report 10563799 (Version 4)
Quarter: 2017Q1

REPORT INFORMATION
  Report Type: Spontaneous
  Country: US (occurrence: US)
  Receive Date: 20141104
  Receipt Date: 20170317
  Transmission Date: 20170428
  Serious: Yes (Other)
  Sender: FDA-Public Use
  Company Number: PHHY2014US081530

PATIENT
  Age: 58 Year
  Sex: Female

DRUGS (13)
  1. BACLOFEN INTRATHECAL [Suspect]
     Active Substance: BACLOFEN
     Indication: MULTIPLE SCLEROSIS
     Dosage: 145.76 UG, QD
     Route: 037
     Dates: end: 20140606
  2. ASPIRIN. [Concomitant]
     Active Substance: ASPIRIN
     Indication: PRODUCT USED FOR UNKNOWN INDICATION
     Route: 065
  3. CALCIUM [Concomitant]
     Active Substance: CALCIUM
     Indication: PRODUCT USED FOR UNKNOWN INDICATION
     Route: 065
  4. LINZESS [Concomitant]
     Active Substance: LINACLOTIDE
     Indication: PRODUCT USED FOR UNKNOWN INDICATION
     Route: 065
  5. VITAMIN D [Concomitant]
     Active Substance: CHOLECALCIFEROL
     Indication: PRODUCT USED FOR UNKNOWN INDICATION
     Route: 065
  6. NUVIGIL [Concomitant]
     Active Substance: ARMODAFINIL
     Indication: PRODUCT USED FOR UNKNOWN INDICATION
     Route: 065
  7. BACLOFEN INTRATHECAL [Suspect]
     Active Substance: BACLOFEN
     Indication: MUSCLE SPASTICITY
  8. CYMBALTA [Concomitant]
     Active Substance: DULOXETINE HYDROCHLORIDE
     Indication: PRODUCT USED FOR UNKNOWN INDICATION
     Route: 065
  9. MULTI VITAMIN [Concomitant]
     Active Substance: VITAMINS
     Indication: PRODUCT USED FOR UNKNOWN INDICATION
     Route: 065
  10. LIORESAL [Suspect]
     Active Substance: BACLOFEN
     Indication: MUSCLE SPASTICITY
     Dosage: 210.55 UG, QD
     Route: 037
  11. IRON [Concomitant]
     Active Substance: IRON
     Indication: PRODUCT USED FOR UNKNOWN INDICATION
     Route: 065
  12. GABAPENTIN. [Concomitant]
     Active Substance: GABAPENTIN
     Indication: PRODUCT USED FOR UNKNOWN INDICATION
     Route: 065
  13. LIORESAL [Suspect]
     Active Substance: BACLOFEN
     Indication: MULTIPLE SCLEROSIS
     Dosage: 145.75 UG, QD
     Route: 037
     Dates: start: 20140606

REACTIONS (31)
  - Altered state of consciousness [Recovered/Resolved]
  - Anal incontinence [Recovered/Resolved]
  - Mood swings [Recovered/Resolved]
  - Malaise [Recovered/Resolved]
  - Vomiting [Recovered/Resolved]
  - Memory impairment [Recovered/Resolved]
  - Meningitis chemical [Recovered/Resolved]
  - Transient ischaemic attack [Recovered/Resolved]
  - Feeling cold [Recovered/Resolved]
  - Urinary incontinence [Recovered/Resolved]
  - Device kink [Recovered/Resolved]
  - Increased appetite [Recovered/Resolved]
  - Headache [Recovered/Resolved]
  - Nonspecific reaction [Recovered/Resolved]
  - Arachnoid cyst [Recovered/Resolved]
  - Lethargy [Recovered/Resolved]
  - Nausea [Recovered/Resolved]
  - Muscle spasms [Recovered/Resolved]
  - Depressed mood [Recovered/Resolved]
  - Overdose [Recovered/Resolved]
  - Normal pressure hydrocephalus [Recovered/Resolved]
  - Unevaluable event [Recovered/Resolved]
  - Weight increased [Recovered/Resolved]
  - Incoherent [Recovered/Resolved]
  - Tethered cord syndrome [Recovered/Resolved]
  - Arachnoiditis [Recovered/Resolved]
  - Diarrhoea [Recovered/Resolved]
  - Pain [Recovered/Resolved]
  - Cerebral ventricle dilatation [Recovered/Resolved]
  - Gait disturbance [Recovered/Resolved]
  - Device alarm issue [Recovered/Resolved]

NARRATIVE: CASE EVENT DATE: 200905
